FAERS Safety Report 9540019 (Version 1)
Quarter: 2013Q2

REPORT INFORMATION
  Report Type: Spontaneous
  Country: US (occurrence: None)
  Receive Date: 20130524
  Receipt Date: 20130524
  Transmission Date: 20140414
  Serious: Yes (Other)
  Sender: FDA-Public Use
  Company Number: PHEH2013US002870

PATIENT
  Age: 37 Year
  Sex: Female
  Weight: 72.6 kg

DRUGS (9)
  1. GILENYA [Suspect]
     Route: 048
  2. SERTRALINE [Concomitant]
  3. NEURONTIN (GABAPENTIN) [Concomitant]
  4. LYRICA (PREGABALIN) [Concomitant]
  5. TRAMADOL HCL (TRAMADOL HYDROCHLORIDE) [Concomitant]
  6. LISINOPRIL [Concomitant]
  7. IBUPROFEN [Concomitant]
  8. PROZAC (FLUOXETINE HYDROCHLORIDE) [Concomitant]
  9. DIURETICS (NO INGREDIENTS/ SUBSTANCES) [Concomitant]

REACTIONS (5)
  - Atypical pneumonia [None]
  - Multiple sclerosis relapse [None]
  - Influenza like illness [None]
  - Optic neuritis [None]
  - Visual impairment [None]
